FAERS Safety Report 17036107 (Version 1)
Quarter: 2019Q4

REPORT INFORMATION
  Report Type: Spontaneous
  Country: US (occurrence: US)
  Receive Date: 20191016
  Receipt Date: 20191016
  Transmission Date: 20200122
  Serious: Yes (Hospitalization)
  Sender: FDA-Public Use
  Company Number: None

PATIENT
  Age: 61 Year
  Sex: Female

DRUGS (1)
  1. PIQRAY [Suspect]
     Active Substance: ALPELISIB
     Route: 048
     Dates: start: 201908, end: 201909

REACTIONS (3)
  - Diarrhoea [None]
  - Abdominal pain [None]
  - Lipase increased [None]

NARRATIVE: CASE EVENT DATE: 20191016
